FAERS Safety Report 6560154-8 (Version None)
Quarter: 2010Q1

REPORT INFORMATION
  Report Type: 
  Country: None (occurrence: None)
  Receive Date: 20100129
  Receipt Date: 20051011
  Transmission Date: 20100710
  Serious: Yes (Disabling)
  Sender: FDA-Public Use
  Company Number: US-ALLERGAN-200500111

PATIENT
  Age: 53 Year
  Sex: Male

DRUGS (29)
  1. BOTOX [Suspect]
     Indication: TORTICOLLIS
     Dosage: SMALL QUANT ^EXP BTX^IN MID '90S
     Route: 030
     Dates: start: 19950101
  2. BOTOX [Suspect]
     Dosage: 2 ROUNDS OF BOTOX, NO DATES
     Route: 030
     Dates: start: 20030101
  3. BOTOX [Suspect]
     Route: 030
     Dates: start: 20040101
  4. BOTOX [Suspect]
     Dosage: DOSE QUANTITY: 1060, DOSE UNIT: UNITS
     Route: 030
     Dates: start: 20031110, end: 20041102
  5. NEURONTIN [Concomitant]
     Indication: PAIN
  6. UNSPECIFIED SKIN LOTION [Concomitant]
     Indication: SKIN IRRITATION
     Dosage: TO FACE
     Route: 061
  7. PROTONIX [Concomitant]
     Indication: DRUG USE FOR UNKNOWN INDICATION
     Dosage: DOSE QUANTITY: 40, DOSE UNIT: MG
     Route: 048
     Dates: start: 20041011
  8. TERAZOSIN HCL [Concomitant]
     Indication: DRUG USE FOR UNKNOWN INDICATION
     Dosage: DOSE QUANTITY: 2, DOSE UNIT: MG
     Route: 048
     Dates: start: 20041115
  9. TERAZOSIN HCL [Concomitant]
     Dosage: DOSE QUANTITY: 5, DOSE UNIT: MG
     Route: 048
  10. PROSCAR [Concomitant]
     Indication: DRUG USE FOR UNKNOWN INDICATION
     Dosage: DOSE QUANTITY: 5, DOSE UNIT: MG
     Route: 048
     Dates: start: 20041201
  11. FLOMAX [Concomitant]
     Indication: DRUG USE FOR UNKNOWN INDICATION
     Dosage: DOSE QUANTITY: .4, DOSE UNIT: MG
     Route: 048
     Dates: start: 20041201
  12. KETOCONAZOLE [Concomitant]
     Indication: DRUG USE FOR UNKNOWN INDICATION
     Dosage: DOSE QUANTITY: 2, DOSE UNIT: %
     Route: 061
     Dates: start: 20041228
  13. LUXIQ [Concomitant]
     Indication: DRUG USE FOR UNKNOWN INDICATION
     Dosage: DOSE QUANTITY: .12, DOSE UNIT: %
     Route: 065
     Dates: start: 20041228
  14. HYDROCODONE/ACETAMINOPHIN [Concomitant]
     Indication: DRUG USE FOR UNKNOWN INDICATION
     Dosage: DOSE QUANTITY: 5, DOSE UNIT: MG
     Route: 048
     Dates: start: 20050114
  15. OXYCODONE/ACETAMINOPHIN [Concomitant]
     Indication: DRUG USE FOR UNKNOWN INDICATION
     Dosage: DOSE QUANTITY: 5, DOSE UNIT: MG
     Route: 048
     Dates: start: 20050118
  16. PREDNISONE [Concomitant]
     Indication: DRUG USE FOR UNKNOWN INDICATION
     Dosage: DOSE QUANTITY: 10, DOSE UNIT: MG
     Route: 048
     Dates: start: 20050222
  17. ZITHROMAX [Concomitant]
     Indication: DRUG USE FOR UNKNOWN INDICATION
     Dosage: DOSE QUANTITY: 500, DOSE UNIT: MG
     Route: 048
     Dates: start: 20050222
  18. AMOXICILLIN [Concomitant]
     Indication: DRUG USE FOR UNKNOWN INDICATION
     Dosage: DOSE QUANTITY: 500, DOSE UNIT: MG
     Route: 048
     Dates: start: 20050228
  19. OXYCODONE/ACETAMINOPHIN [Concomitant]
     Dosage: DOSE QUANTITY: 10, DOSE UNIT: MG
     Route: 048
     Dates: start: 20050401
  20. HALDOL [Concomitant]
     Indication: DRUG USE FOR UNKNOWN INDICATION
  21. VALIUM [Concomitant]
     Route: 048
  22. BENADRYL [Concomitant]
     Indication: DRUG USE FOR UNKNOWN INDICATION
  23. XANAX [Concomitant]
     Indication: DRUG USE FOR UNKNOWN INDICATION
     Dosage: 1MG, TID
     Route: 048
  24. FLEXERIL [Concomitant]
     Indication: DRUG USE FOR UNKNOWN INDICATION
     Dosage: 10MG, Q4HR
     Route: 048
  25. ARTANE [Concomitant]
     Indication: DRUG USE FOR UNKNOWN INDICATION
     Dosage: DOSE QUANTITY: 30, DOSE UNIT: MG
     Route: 048
  26. DARVON [Concomitant]
     Indication: DRUG USE FOR UNKNOWN INDICATION
     Route: 048
  27. VOLTAREN [Concomitant]
     Indication: DRUG USE FOR UNKNOWN INDICATION
     Route: 048
  28. AMITRIPTYLINE HCL [Concomitant]
     Indication: DRUG USE FOR UNKNOWN INDICATION
     Dosage: 10MG, QHS
     Route: 048
  29. DARVOCET-N 100 [Concomitant]
     Indication: DRUG USE FOR UNKNOWN INDICATION
     Dosage: DOSE QUANTITY: 3, Q4HR
     Route: 048

REACTIONS (8)
  - ASTHENIA [None]
  - BURNING SENSATION [None]
  - DYSPHAGIA [None]
  - HYPOAESTHESIA [None]
  - MUSCULAR WEAKNESS [None]
  - PAIN [None]
  - PARAESTHESIA [None]
  - TREMOR [None]
